FAERS Safety Report 7758724-4 (Version None)
Quarter: 2011Q3

REPORT INFORMATION
  Report Type: 
  Country: None (occurrence: None)
  Receive Date: 20110825
  Receipt Date: 20110517
  Transmission Date: 20111222
  Serious: Yes (Other)
  Sender: FDA-Public Use
  Company Number: 323608

PATIENT
  Age: 28 Year
  Sex: Female
  Weight: 95.7 kg

DRUGS (5)
  1. VICTOZA [Suspect]
     Indication: TYPE 2 DIABETES MELLITUS
     Dosage: 0.6 MG, QD, SUBCUTANEOUS
     Route: 058
     Dates: start: 20110212, end: 20110217
  2. ULTRAM [Concomitant]
  3. PRANDIN /00882701/  (DEFLAZACORT) [Concomitant]
  4. FLEXERIL  /00428402/ (CYCLOBENZAPRINE HYDROCHLORIDE) [Concomitant]
  5. RESTORIL  /00054301/ (CHLORMEZANONE) [Concomitant]

REACTIONS (7)
  - ERUCTATION [None]
  - DEHYDRATION [None]
  - VOMITING [None]
  - DIARRHOEA [None]
  - NAUSEA [None]
  - DECREASED APPETITE [None]
  - INJECTION SITE PAIN [None]
